FAERS Safety Report 8445221 (Version 5)
Quarter: 2013Q4

REPORT INFORMATION
  Report Type: Spontaneous
  Country: US (occurrence: US)
  Receive Date: 20120307
  Receipt Date: 20131112
  Transmission Date: 20140711
  Serious: Yes (Other)
  Sender: FDA-Public Use
  Company Number: US-ROCHE-1020279

PATIENT
  Age: 20 Year
  Sex: Male
  Weight: 78.09 kg

DRUGS (4)
  1. ACCUTANE [Suspect]
     Indication: ACNE
     Route: 065
     Dates: start: 1998, end: 20000618
  2. ACCUTANE [Suspect]
     Route: 065
     Dates: start: 200004, end: 200007
  3. TYLENOL [Concomitant]
  4. BACTROBAN OINTMENT [Concomitant]

REACTIONS (5)
  - Crohn^s disease [Unknown]
  - Colitis ulcerative [Unknown]
  - Inflammatory bowel disease [Unknown]
  - Irritable bowel syndrome [Unknown]
  - Depression [Unknown]
